FAERS Safety Report 19246094 (Version 4)
Quarter: 2021Q4

REPORT INFORMATION
  Report Type: Report from Study
  Country: NL (occurrence: NL)
  Receive Date: 20210512
  Receipt Date: 20211219
  Transmission Date: 20220303
  Serious: Yes (Hospitalization)
  Sender: FDA-Public Use
  Company Number: NVSC2021NL105424

PATIENT
  Age: 72 Year
  Sex: Female
  Weight: 57.4 kg

DRUGS (4)
  1. LUTETIUM OXODOTREOTIDE LU-177 [Suspect]
     Active Substance: LUTETIUM OXODOTREOTIDE LU-177
     Indication: Pancreatic neuroendocrine tumour
     Dosage: UNK
     Route: 042
     Dates: start: 20210128, end: 20210128
  2. LUTETIUM OXODOTREOTIDE LU-177 [Suspect]
     Active Substance: LUTETIUM OXODOTREOTIDE LU-177
     Dosage: UNK
     Route: 042
     Dates: start: 20210325, end: 20210325
  3. GRANISETRON [Concomitant]
     Active Substance: GRANISETRON
     Indication: Product used for unknown indication
     Dosage: 3 MG, QD
     Route: 042
     Dates: start: 20210128, end: 20210128
  4. GRANISETRON [Concomitant]
     Active Substance: GRANISETRON
     Dosage: 3 MG, QD
     Route: 042
     Dates: start: 20210325, end: 20210325

REACTIONS (2)
  - Small intestinal obstruction [Recovered/Resolved]
  - Small intestinal obstruction [Recovered/Resolved]

NARRATIVE: CASE EVENT DATE: 20210407
